FAERS Safety Report 24013635 (Version 1)
Quarter: 2024Q2

REPORT INFORMATION
  Report Type: Spontaneous
  Country: CN (occurrence: CN)
  Receive Date: 20240626
  Receipt Date: 20240626
  Transmission Date: 20240716
  Serious: Yes (Hospitalization, Other)
  Sender: FDA-Public Use
  Company Number: None

PATIENT
  Age: 45 Year
  Sex: Female
  Weight: 53 kg

DRUGS (6)
  1. CYCLOPHOSPHAMIDE [Suspect]
     Active Substance: CYCLOPHOSPHAMIDE
     Indication: Breast cancer female
     Dosage: 0.86 G, ONE TIME IN ONE DAY, DILUTED WITH SODIUM CHLORIDE INJECTION 500 ML, (IMPORTED)
     Route: 041
     Dates: start: 20240528, end: 20240528
  2. DOXORUBICIN HYDROCHLORIDE [Suspect]
     Active Substance: DOXORUBICIN HYDROCHLORIDE
     Indication: Breast cancer female
     Dosage: 50 MG, ONE TIME IN ONE DAY, DILUTED WITH GLUCOSE 250 ML
     Route: 041
     Dates: start: 20240528, end: 20240528
  3. DOXORUBICIN HYDROCHLORIDE [Suspect]
     Active Substance: DOXORUBICIN HYDROCHLORIDE
     Indication: Adjuvant therapy
  4. DOXORUBICIN HYDROCHLORIDE [Suspect]
     Active Substance: DOXORUBICIN HYDROCHLORIDE
     Indication: Chemotherapy
  5. SODIUM CHLORIDE [Suspect]
     Active Substance: SODIUM CHLORIDE
     Indication: Breast cancer female
     Dosage: 500 ML, ONE TIME IN ONE DAY, USED TO DILUTE CYCLOPHOSPHAMIDE 0.86 G
     Route: 041
     Dates: start: 20240528, end: 20240528
  6. DEXTROSE [Suspect]
     Active Substance: DEXTROSE\DEXTROSE MONOHYDRATE
     Indication: Breast cancer female
     Dosage: 250 ML, ONE TIME IN ONE DAY, USED TO DILUTE DOXORUBICIN HYDROCHLORIDE LIPOSOME 50 MG
     Route: 041
     Dates: start: 20240528, end: 20240528

REACTIONS (9)
  - Breast cancer female [Unknown]
  - Condition aggravated [Unknown]
  - Aversion [Recovering/Resolving]
  - Glossodynia [Recovering/Resolving]
  - Decreased appetite [Recovering/Resolving]
  - Oropharyngeal blistering [Recovering/Resolving]
  - Oropharyngeal pain [Recovering/Resolving]
  - Oral pain [Recovering/Resolving]
  - Hepatic function abnormal [Recovering/Resolving]

NARRATIVE: CASE EVENT DATE: 20240610
